FAERS Safety Report 9672480 (Version 1)
Quarter: 2013Q4

REPORT INFORMATION
  Report Type: Spontaneous
  Country: US (occurrence: US)
  Receive Date: 20131106
  Receipt Date: 20131106
  Transmission Date: 20140711
  Serious: No
  Sender: FDA-Public Use
  Company Number: US-009507513-1310USA010459

PATIENT
  Age: 60 Year
  Sex: Male

DRUGS (7)
  1. VICTRELIS [Suspect]
     Indication: HEPATITIS C
     Dosage: 800 MG, TID
     Route: 048
     Dates: start: 201307
  2. REBETOL [Suspect]
     Indication: HEPATITIS C
     Route: 048
  3. PEGASYS [Suspect]
  4. FLOMAX (MORNIFLUMATE) [Concomitant]
  5. PANTOTHENIC ACID [Concomitant]
  6. MAGNESIUM (UNSPECIFIED) [Concomitant]
  7. CYANOCOBALAMIN [Concomitant]

REACTIONS (2)
  - Head injury [Unknown]
  - Tinnitus [Unknown]
